FAERS Safety Report 5588568-3 (Version None)
Quarter: 2008Q1

REPORT INFORMATION
  Report Type: 
  Country: None (occurrence: None)
  Receive Date: 20080111
  Receipt Date: 20071015
  Transmission Date: 20080703
  Serious: Yes (Other)
  Sender: FDA-Public Use
  Company Number: US-BRISTOL-MYERS SQUIBB COMPANY-13941679

PATIENT
  Sex: Male

DRUGS (7)
  1. DESYREL [Suspect]
  2. MORPHINE HCL [Suspect]
  3. MS CONTIN [Suspect]
     Route: 048
  4. COLACE [Concomitant]
  5. VENTOLIN [Concomitant]
  6. MAGNOLAX [Concomitant]
  7. CASCARA TAB [Concomitant]

REACTIONS (5)
  - AGGRESSION [None]
  - CONFUSIONAL STATE [None]
  - DELUSION [None]
  - HALLUCINATION [None]
  - PARANOIA [None]
